FAERS Safety Report 6297930-5 (Version None)
Quarter: 2009Q3

REPORT INFORMATION
  Report Type: 
  Country: None (occurrence: None)
  Receive Date: 20090805
  Receipt Date: 20090730
  Transmission Date: 20100115
  Serious: Yes (Death)
  Sender: FDA-Public Use
  Company Number: A0799694A

PATIENT
  Age: 78 Year
  Sex: Female

DRUGS (10)
  1. ADVAIR HFA [Suspect]
     Indication: CHRONIC OBSTRUCTIVE PULMONARY DISEASE
     Dosage: 1PUFF TWICE PER DAY
     Route: 055
     Dates: start: 20050101
  2. SYNTHROID [Concomitant]
  3. SINGULAIR [Concomitant]
  4. COMBIVENT [Concomitant]
  5. SPIRIVA [Concomitant]
  6. CHEMOTHERAPY [Concomitant]
  7. PREDNISONE TAB [Concomitant]
  8. CYTOXAN [Concomitant]
  9. VINCRISTINE [Concomitant]
  10. RITUXIMAB [Concomitant]

REACTIONS (3)
  - CLOSTRIDIUM DIFFICILE COLITIS [None]
  - ENTEROCOCCAL INFECTION [None]
  - SEPSIS [None]
